FAERS Safety Report 5677524-2 (Version None)
Quarter: 2008Q1

REPORT INFORMATION
  Report Type: 
  Country: None (occurrence: None)
  Receive Date: 20080324
  Receipt Date: 20080312
  Transmission Date: 20080703
  Serious: Yes (Death, Hospitalization, Disabling, Other)
  Sender: FDA-Public Use
  Company Number: CA-ELI_LILLY_AND_COMPANY-CA200710000892

PATIENT
  Age: 49 Year
  Sex: Male

DRUGS (17)
  1. FORTEO [Suspect]
     Indication: OSTEOPOROSIS
     Dosage: 20 UG, DAILY (1/D)
     Route: 058
     Dates: start: 20060627, end: 20070901
  2. EFFEXOR [Concomitant]
  3. VITAMIN B-12 [Concomitant]
     Route: 058
  4. ROCALTROL [Concomitant]
  5. CRESTOR [Concomitant]
  6. PARIET [Concomitant]
  7. PREDNISONE TAB [Concomitant]
  8. FOLIC ACID [Concomitant]
  9. SYNTHROID [Concomitant]
  10. QUINIDINE SULFATE [Concomitant]
  11. HYDROXYZINE [Concomitant]
  12. PLAVIX [Concomitant]
  13. ASPIRIN [Concomitant]
  14. TRAZODONE HCL [Concomitant]
  15. AMIODARONE HCL [Concomitant]
  16. CLONAZEPAM [Concomitant]
  17. TYLENOL /USA/ [Concomitant]

REACTIONS (6)
  - AMPUTATION [None]
  - BLOOD TEST ABNORMAL [None]
  - DEATH [None]
  - IMPAIRED HEALING [None]
  - LIMB DISCOMFORT [None]
  - LUPUS VASCULITIS [None]
